FAERS Safety Report 4724882-9 (Version None)
Quarter: 2005Q3

REPORT INFORMATION
  Report Type: 
  Country: None (occurrence: None)
  Receive Date: 20050720
  Receipt Date: 20050720
  Transmission Date: 20060218
  Serious: Yes (Other)
  Sender: FDA-Public Use
  Company Number: None

PATIENT
  Age: 68 Year
  Sex: Male
  Weight: 64 kg

DRUGS (2)
  1. ENFUVIRTIDE 90 MG ROCHE [Suspect]
     Indication: ACQUIRED IMMUNODEFICIENCY SYNDROME
     Dosage: 90 MG BID SUBCUTANEOUS
     Route: 058
     Dates: start: 20050606, end: 20050719
  2. TENOFOVIR [Suspect]
     Indication: ACQUIRED IMMUNODEFICIENCY SYNDROME
     Dosage: 300 MG DAILY ORAL
     Route: 048
     Dates: start: 20030622, end: 20050719

REACTIONS (1)
  - NEPHRITIS INTERSTITIAL [None]
